FAERS Safety Report 4462942-0 (Version None)
Quarter: 2004Q3

REPORT INFORMATION
  Report Type: 
  Country: None (occurrence: None)
  Receive Date: 20040927
  Receipt Date: 20040601
  Transmission Date: 20050211
  Serious: Yes (Hospitalization)
  Sender: FDA-Public Use
  Company Number: D01200401952

PATIENT
  Age: 50 Year
  Sex: Male
  Weight: 102.3 kg

DRUGS (22)
  1. CISPLATIN [Suspect]
     Indication: CARCINOMA
     Dosage: 100 MG/M2 OTHER - INTRAVENOUS NOS
     Route: 042
     Dates: start: 20040514, end: 20040514
  2. FENTANYL [Concomitant]
  3. TRANSDERMAL [Concomitant]
  4. FLUCONAZOLE [Concomitant]
  5. BENZYDAMINE [Concomitant]
  6. METOCLOPRAMIDE [Concomitant]
  7. LACTULOSE [Concomitant]
  8. FLUOXETINE [Concomitant]
  9. LORAZEPAM [Concomitant]
  10. NYSTATIN [Concomitant]
  11. BENZYDAMINE [Concomitant]
  12. ONDANSETRON HCL [Concomitant]
  13. DEXAMETHASONE [Concomitant]
  14. PROCHLORPERAZINE [Concomitant]
  15. METOCLOPRAMIDE [Concomitant]
  16. DIMENHYDRINATE [Concomitant]
  17. SENNA FRUIT [Concomitant]
  18. DOCUSATE SODIUM [Concomitant]
  19. BISACODYL [Concomitant]
  20. IBUPROFEN [Concomitant]
  21. PARACETAMOL [Concomitant]
  22. DICLOFENAC [Concomitant]

REACTIONS (8)
  - DERMATITIS [None]
  - IMPAIRED SELF-CARE [None]
  - INADEQUATE ANALGESIA [None]
  - LUNG CONSOLIDATION [None]
  - ORAL MUCOSAL DISORDER [None]
  - PNEUMONITIS [None]
  - TONGUE ULCERATION [None]
  - WEIGHT DECREASED [None]
